FAERS Safety Report 17747781 (Version 1)
Quarter: 2020Q2

REPORT INFORMATION
  Report Type: Spontaneous
  Country: US (occurrence: US)
  Receive Date: 20200505
  Receipt Date: 20200505
  Transmission Date: 20200714
  Serious: No
  Sender: FDA-Public Use
  Company Number: US-ROCHE-2416991

PATIENT
  Sex: Female

DRUGS (1)
  1. ESBRIET [Suspect]
     Active Substance: PIRFENIDONE
     Indication: PRODUCT USED FOR UNKNOWN INDICATION
     Route: 048
     Dates: start: 201908, end: 201909

REACTIONS (7)
  - Bone pain [Unknown]
  - Abdominal pain [Unknown]
  - Yellow skin [Unknown]
  - Diabetes mellitus [Unknown]
  - Ocular icterus [Unknown]
  - Myalgia [Unknown]
  - Dysuria [Unknown]
